FAERS Safety Report 15669029 (Version 1)
Quarter: 2018Q4

REPORT INFORMATION
  Report Type: Spontaneous
  Country: DE (occurrence: DE)
  Receive Date: 20181129
  Receipt Date: 20181129
  Transmission Date: 20190205
  Serious: Yes (Other)
  Sender: FDA-Public Use
  Company Number: DE-BRISTOL-MYERS SQUIBB COMPANY-BMS-2018-109760

PATIENT
  Age: 73 Year
  Sex: Male

DRUGS (1)
  1. OPDIVO [Suspect]
     Active Substance: NIVOLUMAB
     Indication: SQUAMOUS CELL CARCINOMA OF LUNG
     Dosage: UNAV.
     Route: 065
     Dates: start: 20170124

REACTIONS (3)
  - Limb deformity [Unknown]
  - Malignant neoplasm progression [Unknown]
  - Autoimmune neuropathy [Unknown]

NARRATIVE: CASE EVENT DATE: 201805
